FAERS Safety Report 10596716 (Version 1)
Quarter: 2014Q4

REPORT INFORMATION
  Report Type: Spontaneous
  Country: JP (occurrence: JP)
  Receive Date: 20141120
  Receipt Date: 20141120
  Transmission Date: 20150529
  Serious: Yes (Hospitalization)
  Sender: FDA-Public Use
  Company Number: JP-ASTRAZENECA-2014SE87839

PATIENT
  Age: 21848 Day
  Sex: Female

DRUGS (26)
  1. SLONNON HI [Concomitant]
     Indication: PROPHYLAXIS
     Route: 041
  2. CALONAL [Concomitant]
     Active Substance: ACETAMINOPHEN
     Indication: PYREXIA
     Route: 048
     Dates: start: 20140507
  3. SLONNON HI [Concomitant]
     Indication: THROMBOSIS IN DEVICE
     Route: 041
  4. MIYA-BM [Concomitant]
     Active Substance: CLOSTRIDIUM BUTYRICUM SPORES STRAIN M-55
     Route: 048
     Dates: start: 20140419
  5. MEROPEN [Suspect]
     Active Substance: MEROPENEM
     Indication: PANCREATIC ABSCESS
     Route: 042
     Dates: start: 20140421
  6. SIGMART [Concomitant]
     Active Substance: NICORANDIL
     Route: 048
     Dates: start: 20140419
  7. VANCOMYCIN HYDROCHLORIDE. [Concomitant]
     Active Substance: VANCOMYCIN HYDROCHLORIDE
     Indication: PANCREATIC ABSCESS
     Dates: start: 20140124, end: 20140306
  8. MEROPEN [Suspect]
     Active Substance: MEROPENEM
     Indication: PANCREATIC ABSCESS
     Route: 042
     Dates: start: 20140227, end: 20140306
  9. MEROPEN [Suspect]
     Active Substance: MEROPENEM
     Indication: PANCREATIC ABSCESS
     Route: 042
     Dates: start: 20140508, end: 20140509
  10. TAKEPRON [Concomitant]
     Active Substance: LANSOPRAZOLE
     Route: 048
     Dates: start: 20140419
  11. TSUMURA RIKKUNSHITO EXTRACT GRANULES FOR ETHICAL USE [Concomitant]
     Active Substance: HERBALS
     Route: 048
     Dates: start: 20140419
  12. HACHIAZULE [Concomitant]
     Dates: start: 20140419
  13. MS REISHIPPU [Concomitant]
     Active Substance: CAMPHOR\MENTHOL\METHYL SALICYLATE
     Dates: start: 20140419
  14. NEUTROGIN [Concomitant]
     Active Substance: LENOGRASTIM
     Indication: PANCYTOPENIA
     Route: 058
     Dates: start: 20140507, end: 20140511
  15. HIRUDOID [Concomitant]
     Active Substance: GLYCOSAMINOGLYCANS
     Dates: start: 20140509
  16. LASIX [Concomitant]
     Active Substance: FUROSEMIDE
     Route: 048
     Dates: start: 20140419
  17. URSO [Concomitant]
     Active Substance: URSODIOL
     Route: 048
     Dates: start: 20140419
  18. AZACTAM [Concomitant]
     Active Substance: AZTREONAM
     Indication: PANCREATIC ABSCESS
     Route: 042
     Dates: start: 20140509, end: 20140520
  19. FLAGYL [Concomitant]
     Active Substance: METRONIDAZOLE\METRONIDAZOLE HYDROCHLORIDE
     Route: 048
     Dates: start: 20140509
  20. MEROPEN [Suspect]
     Active Substance: MEROPENEM
     Indication: PANCREATIC ABSCESS
     Route: 042
     Dates: start: 20140124
  21. MEROPEN [Suspect]
     Active Substance: MEROPENEM
     Indication: PANCREATIC ABSCESS
     Route: 042
     Dates: start: 20140505, end: 20140507
  22. PREDONINE [Concomitant]
     Active Substance: PREDNISOLONE\PREDNISOLONE ACETATE\PREDNISOLONE SODIUM SUCCINATE
     Route: 048
     Dates: start: 20140419
  23. PLAVIX [Concomitant]
     Active Substance: CLOPIDOGREL BISULFATE
     Route: 048
     Dates: start: 20140419
  24. MAINTATE [Concomitant]
     Active Substance: BISOPROLOL FUMARATE
     Route: 048
     Dates: start: 20140419
  25. VANCOMYCIN HYDROCHLORIDE. [Concomitant]
     Active Substance: VANCOMYCIN HYDROCHLORIDE
     Indication: PANCREATIC ABSCESS
     Route: 041
     Dates: start: 20140509, end: 20140526
  26. MEROPEN [Suspect]
     Active Substance: MEROPENEM
     Indication: PANCREATIC ABSCESS
     Route: 042
     Dates: start: 20140407, end: 20140414

REACTIONS (4)
  - Pancreatic abscess [Unknown]
  - Neutropenia [Recovered/Resolved]
  - Pancytopenia [Recovered/Resolved]
  - Pyrexia [Recovered/Resolved]

NARRATIVE: CASE EVENT DATE: 20140505
